FAERS Safety Report 10172685 (Version 1)
Quarter: 2014Q2

REPORT INFORMATION
  Report Type: Spontaneous
  Country: FR (occurrence: FR)
  Receive Date: 20140515
  Receipt Date: 20140515
  Transmission Date: 20141212
  Serious: Yes (Other)
  Sender: FDA-Public Use
  Company Number: FR-ROXANE LABORATORIES, INC.-2014-RO-00723RO

PATIENT
  Age: 11 Year
  Sex: Male

DRUGS (7)
  1. MYCOPHENOLATE MOFETIL [Suspect]
     Indication: DERMATOMYOSITIS
     Route: 065
  2. AZATHIOPRINE [Suspect]
     Indication: DERMATOMYOSITIS
     Route: 065
  3. CYCLOSPORINE [Suspect]
     Indication: DERMATOMYOSITIS
     Route: 065
  4. CYCLOPHOSPHAMIDE [Suspect]
     Indication: DERMATOMYOSITIS
     Route: 042
  5. IMMUNOGLOBULIN [Suspect]
     Indication: DERMATOMYOSITIS
     Route: 042
  6. METHYLPREDNISOLONE [Suspect]
     Indication: DERMATOMYOSITIS
     Route: 048
  7. METHYLPREDNISOLONE [Suspect]
     Route: 042

REACTIONS (6)
  - Obesity [Unknown]
  - Neurotoxicity [Unknown]
  - Hypertension [Unknown]
  - Osteoporosis [Unknown]
  - Calcinosis [Unknown]
  - Osteonecrosis [Unknown]
